FAERS Safety Report 5029219-6 (Version None)
Quarter: 2006Q2

REPORT INFORMATION
  Report Type: 
  Country: None (occurrence: None)
  Receive Date: 20060613
  Receipt Date: 20060601
  Transmission Date: 20061013
  Serious: Yes (Other)
  Sender: FDA-Public Use
  Company Number: B0426085A

PATIENT

DRUGS (1)
  1. PAXIL [Suspect]
     Dosage: 20 MG/KG PER DAY/ TRANSPLACENTARY
     Route: 064

REACTIONS (9)
  - CHILLS [None]
  - CHOREA [None]
  - CRYING [None]
  - DRUG EXPOSURE DURING PREGNANCY [None]
  - DRUG WITHDRAWAL SYNDROME NEONATAL [None]
  - FEEDING DISORDER NEONATAL [None]
  - HYPERTONIA [None]
  - IRRITABILITY [None]
  - PREMATURE BABY [None]
